FAERS Safety Report 15783259 (Version 7)
Quarter: 2019Q2

REPORT INFORMATION
  Report Type: Report from Study
  Country: JP (occurrence: JP)
  Receive Date: 20190102
  Receipt Date: 20190618
  Transmission Date: 20190711
  Serious: Yes (Hospitalization)
  Sender: FDA-Public Use
  Company Number: JP-EISAI MEDICAL RESEARCH-EC-2018-049877

PATIENT
  Age: 67 Year
  Sex: Male
  Weight: 81 kg

DRUGS (14)
  1. PEMBROLIZUMAB. [Suspect]
     Active Substance: PEMBROLIZUMAB
     Indication: RENAL CELL CARCINOMA
     Route: 041
     Dates: start: 20181128, end: 20190515
  2. RIFXIMA [Concomitant]
     Active Substance: RIFAXIMIN
  3. NORVASC [Concomitant]
     Active Substance: AMLODIPINE BESYLATE
  4. NOVORAPID [Concomitant]
     Active Substance: INSULIN ASPART
  5. LENVATINIB [Suspect]
     Active Substance: LENVATINIB
     Route: 048
     Dates: start: 20190109, end: 20190130
  6. LENVATINIB [Suspect]
     Active Substance: LENVATINIB
     Dosage: DOSE AND FREQUENCY UNKNOWN
     Route: 048
     Dates: start: 2019, end: 20190514
  7. CORTRIL [Concomitant]
     Active Substance: HYDROCORTISONE
  8. LACTULOSE. [Concomitant]
     Active Substance: LACTULOSE
  9. AMLODIPINE [Concomitant]
     Active Substance: AMLODIPINE BESYLATE
  10. LENVATINIB [Suspect]
     Active Substance: LENVATINIB
     Indication: RENAL CELL CARCINOMA
     Route: 048
     Dates: start: 20181128, end: 20181226
  11. MAINTATE [Concomitant]
     Active Substance: BISOPROLOL FUMARATE
  12. ELIQUIS [Concomitant]
     Active Substance: APIXABAN
  13. LEVOTHYROXINE SODIUM HYDRATE [Concomitant]
     Active Substance: LEVOTHYROXINE SODIUM
  14. BISOPROLOL FUMARATE. [Concomitant]
     Active Substance: BISOPROLOL FUMARATE

REACTIONS (3)
  - Depressed level of consciousness [Recovered/Resolved]
  - Dehydration [Recovered/Resolved]
  - Cardiac failure acute [Recovering/Resolving]

NARRATIVE: CASE EVENT DATE: 20181226
